FAERS Safety Report 4354661-6 (Version None)
Quarter: 2004Q2

REPORT INFORMATION
  Report Type: 
  Country: None (occurrence: None)
  Receive Date: 20040506
  Receipt Date: 20040506
  Transmission Date: 20050107
  Serious: Yes (Disabling, Congenital Anomaly, Other)
  Sender: FDA-Public Use
  Company Number: None

PATIENT
  Age: 44 Year
  Sex: Male
  Weight: 104.3273 kg

DRUGS (1)
  1. SEROQUEL [Suspect]
     Indication: BORDERLINE PERSONALITY DISORDER
     Dosage: 600 MG BID ORAL/MAINTENANCE FOR LIFE
     Route: 048

REACTIONS (1)
  - ADVERSE EVENT [None]
